FAERS Safety Report 21797327 (Version 7)
Quarter: 2024Q1

REPORT INFORMATION
  Report Type: Report from Study
  Country: CO (occurrence: CO)
  Receive Date: 20221230
  Receipt Date: 20240329
  Transmission Date: 20240410
  Serious: Yes (Hospitalization)
  Sender: FDA-Public Use
  Company Number: CO-002147023-NVSC2022CO299757

PATIENT
  Sex: Female
  Weight: 52 kg

DRUGS (1)
  1. ELTROMBOPAG OLAMINE [Suspect]
     Active Substance: ELTROMBOPAG OLAMINE
     Indication: Immune thrombocytopenia
     Dosage: 50 MG, QD
     Route: 048
     Dates: start: 20210607, end: 202402

REACTIONS (4)
  - Platelet count decreased [Unknown]
  - Petechiae [Unknown]
  - Malaise [Unknown]
  - Contusion [Unknown]
